FAERS Safety Report 7941243-X (Version None)
Quarter: 2011Q4

REPORT INFORMATION
  Report Type: 
  Country: None (occurrence: None)
  Receive Date: 20111128
  Receipt Date: 20111119
  Transmission Date: 20120403
  Serious: Yes (Other)
  Sender: FDA-Public Use
  Company Number: IT-JNJFOC-20111109103

PATIENT
  Age: 39 Year
  Sex: Male

DRUGS (2)
  1. RISPERDAL [Suspect]
     Indication: SELF INJURIOUS BEHAVIOUR
     Dosage: TWO TABLETS
     Route: 048
     Dates: start: 20111119
  2. SEROQUEL [Suspect]
     Indication: SELF INJURIOUS BEHAVIOUR
     Route: 048
     Dates: start: 20111119

REACTIONS (1)
  - SELF INJURIOUS BEHAVIOUR [None]
